FAERS Safety Report 9993234 (Version 1)
Quarter: 2014Q1

REPORT INFORMATION
  Report Type: Report from Study
  Country: US (occurrence: US)
  Receive Date: 20140310
  Receipt Date: 20140310
  Transmission Date: 20141002
  Serious: No
  Sender: FDA-Public Use
  Company Number: US-ABBVIE-14P-163-1192486-00

PATIENT
  Age: 26 Year
  Sex: Female
  Weight: 54.48 kg

DRUGS (3)
  1. LUPRON DEPOT [Suspect]
     Indication: ENDOMETRIOSIS
     Route: 030
     Dates: start: 201210, end: 201301
  2. CITALOPRAM [Concomitant]
     Indication: DEPRESSION
  3. PHENERGAN [Concomitant]
     Indication: NAUSEA

REACTIONS (4)
  - Abdominal pain [Recovered/Resolved]
  - Hot flush [Recovered/Resolved]
  - Breast enlargement [Recovered/Resolved]
  - Weight decreased [Recovered/Resolved]
